FAERS Safety Report 25145764 (Version 1)
Quarter: 2025Q2

REPORT INFORMATION
  Report Type: Spontaneous
  Country: ID (occurrence: ID)
  Receive Date: 20250401
  Receipt Date: 20250401
  Transmission Date: 20250717
  Serious: Yes (Hospitalization)
  Sender: CADILA
  Company Number: ID-MLMSERVICE-20250313-PI442768-00125-1

PATIENT
  Age: 33 Year
  Sex: Female

DRUGS (1)
  1. DONEPEZIL HYDROCHLORIDE [Suspect]
     Active Substance: DONEPEZIL HYDROCHLORIDE
     Indication: Dementia

REACTIONS (5)
  - Aortic valve incompetence [Recovered/Resolved]
  - Tricuspid valve incompetence [Recovered/Resolved]
  - Pulmonary valve incompetence [Recovered/Resolved]
  - Bradyarrhythmia [Recovered/Resolved]
  - Hypokalaemia [Recovered/Resolved]
